FAERS Safety Report 4619746-5 (Version None)
Quarter: 2005Q1

REPORT INFORMATION
  Report Type: 
  Country: None (occurrence: None)
  Receive Date: 20050321
  Receipt Date: 20050321
  Transmission Date: 20050727
  Serious: Yes (Other)
  Sender: FDA-Public Use
  Company Number: None

PATIENT
  Age: 54 Year
  Sex: Male
  Weight: 58.9676 kg

DRUGS (3)
  1. ABACAVIR 600MG/LAMIVUDINE 300MG FDC (GSK) [Suspect]
     Indication: HIV INFECTION
     Dosage: 600MG/300MG, QD, ORAL
     Route: 048
     Dates: start: 20041228, end: 20050114
  2. ATAZANAVIR [Concomitant]
  3. RITONAVIR [Concomitant]

REACTIONS (12)
  - CHILLS [None]
  - DRUG HYPERSENSITIVITY [None]
  - DYSPNOEA [None]
  - HEADACHE [None]
  - HYPERHIDROSIS [None]
  - MUSCLE SPASMS [None]
  - MYALGIA [None]
  - NAUSEA [None]
  - NECK PAIN [None]
  - PAIN IN EXTREMITY [None]
  - PYREXIA [None]
  - VOMITING [None]
